FAERS Safety Report 21624637 (Version 1)
Quarter: 2022Q4

REPORT INFORMATION
  Report Type: Report from Study
  Country: CL (occurrence: CL)
  Receive Date: 20221121
  Receipt Date: 20221121
  Transmission Date: 20230112
  Serious: Yes (Other)
  Sender: FDA-Public Use
  Company Number: CL-ABBVIE-4207778

PATIENT
  Sex: Female

DRUGS (2)
  1. HUMIRA [Suspect]
     Active Substance: ADALIMUMAB
     Indication: Rheumatoid arthritis
     Dosage: FORN STRENGTH 40MG
     Route: 058
     Dates: start: 20180402, end: 20220913
  2. HUMIRA [Suspect]
     Active Substance: ADALIMUMAB
     Dosage: FORN STRENGTH 40MG
     Route: 058
     Dates: start: 20221115

REACTIONS (1)
  - Foot deformity [Recovering/Resolving]
